FAERS Safety Report 9424260 (Version 1)
Quarter: 2013Q3

REPORT INFORMATION
  Report Type: Spontaneous
  Country: BR (occurrence: BR)
  Receive Date: 20130729
  Receipt Date: 20130729
  Transmission Date: 20140515
  Serious: Yes (Other)
  Sender: FDA-Public Use
  Company Number: BR-AMGEN-BRASP2013052527

PATIENT
  Age: 42 Year
  Sex: Female
  Weight: 92 kg

DRUGS (2)
  1. ENBREL [Suspect]
     Indication: RHEUMATOID ARTHRITIS
     Dosage: 50 MG, 1X/WEEK
     Route: 058
     Dates: start: 201212
  2. LOSARTAN [Concomitant]
     Indication: HYPERTENSION
     Dosage: UNK

REACTIONS (3)
  - Diabetes mellitus [Unknown]
  - Muscular weakness [Unknown]
  - Gastrointestinal infection [Unknown]
